FAERS Safety Report 11990771 (Version 1)
Quarter: 2016Q1

REPORT INFORMATION
  Report Type: Spontaneous
  Country: US (occurrence: US)
  Receive Date: 20160202
  Receipt Date: 20160202
  Transmission Date: 20160526
  Serious: No
  Sender: FDA-Public Use
  Company Number: US-GALDERMA-US15007750

PATIENT
  Age: 32 Year
  Sex: Female

DRUGS (8)
  1. LIGHTENING CREAM 0.05% [Concomitant]
     Indication: SCAR
     Dosage: 0.05%
     Route: 061
  2. EPIDUO [Suspect]
     Active Substance: ADAPALENE\BENZOYL PEROXIDE
     Indication: ACNE
     Route: 061
     Dates: start: 201502
  3. CERAVE MOISTUZIER WITH SPF 50 [Concomitant]
     Indication: DRY SKIN PROPHYLAXIS
     Route: 061
  4. CLEANSER FOR OILY AND ACNE [Concomitant]
     Indication: THERAPEUTIC SKIN CARE TOPICAL
     Route: 061
  5. NIFEDIPINE ER [Concomitant]
     Active Substance: NIFEDIPINE
     Indication: HYPERTENSION
     Route: 048
  6. SPIRONOLACTONE. [Concomitant]
     Active Substance: SPIRONOLACTONE
     Indication: ACNE
     Dosage: 100 MG
     Route: 048
  7. LABETALOL [Concomitant]
     Active Substance: LABETALOL\LABETALOL HYDROCHLORIDE
     Indication: HYPERTENSION
     Route: 048
  8. L^OREAL NIGHT CREAM [Concomitant]
     Indication: DRY SKIN PROPHYLAXIS
     Route: 061

REACTIONS (1)
  - Exposure during pregnancy [Not Recovered/Not Resolved]

NARRATIVE: CASE EVENT DATE: 20151008
